FAERS Safety Report 7523109-2 (Version None)
Quarter: 2011Q2

REPORT INFORMATION
  Report Type: 
  Country: None (occurrence: None)
  Receive Date: 20110525
  Receipt Date: 20110510
  Transmission Date: 20111010
  Serious: Yes (Death)
  Sender: FDA-Public Use
  Company Number: FK201100999

PATIENT
  Age: 73 Year
  Sex: Male

DRUGS (4)
  1. MESNA [Suspect]
     Indication: LYMPHOMA
     Dates: end: 20070301
  2. ETOPOSIDE [Suspect]
     Indication: LYMPHOMA
     Dates: end: 20070301
  3. IFOSFAMIDE [Suspect]
     Indication: LYMPHOMA
     Dates: end: 20070301
  4. MITOXANTRONE [Suspect]
     Indication: LYMPHOMA
     Dates: end: 20070301

REACTIONS (4)
  - HEPATITIS B [None]
  - HEPATIC FAILURE [None]
  - ENCEPHALOPATHY [None]
  - ASCITES [None]
